FAERS Safety Report 6507173-5 (Version None)
Quarter: 2009Q4

REPORT INFORMATION
  Report Type: 
  Country: None (occurrence: None)
  Receive Date: 20091221
  Receipt Date: 20091210
  Transmission Date: 20100525
  Serious: Yes (Death, Hospitalization, Other)
  Sender: FDA-Public Use
  Company Number: PHHY2009JP06459

PATIENT
  Sex: Male
  Weight: 52 kg

DRUGS (11)
  1. DIOVAN [Suspect]
     Dosage: 80 MG, QD
     Route: 048
     Dates: start: 20071003
  2. ADALAT [Concomitant]
     Indication: HYPERTENSION
     Dosage: 20 MG, UNK
     Route: 048
     Dates: start: 19920201, end: 20081104
  3. PERSELIN [Concomitant]
     Dosage: 50 MG, UNK
     Route: 048
     Dates: start: 19910201
  4. TSUMURA BYAKKOKANINJINTO [Concomitant]
     Dosage: 7.5 G, UNK
     Route: 048
     Dates: start: 19910201
  5. LAXOBERON [Concomitant]
     Dosage: 10 MG, UNK
     Route: 048
     Dates: start: 19920803
  6. HALCION [Concomitant]
     Dosage: 0.25 MG, UNK
     Route: 048
     Dates: start: 19960705
  7. BUFFERIN [Concomitant]
     Dosage: 81 MG, UNK
     Route: 048
     Dates: start: 20040501
  8. MAGNESIUM OXIDE [Concomitant]
     Dosage: 1 G, UNK
     Route: 048
     Dates: start: 19920803
  9. MUCODYNE [Concomitant]
     Dosage: 750 MG, UNK
     Route: 048
     Dates: start: 20060404
  10. LASIX [Concomitant]
     Dosage: 10 MG, UNK
     Route: 048
     Dates: start: 20071003
  11. CLARITH [Concomitant]
     Dosage: 400 MG, UNK
     Route: 048
     Dates: start: 20071031, end: 20071104

REACTIONS (5)
  - CONDITION AGGRAVATED [None]
  - INFECTION [None]
  - PNEUMONIA [None]
  - RENAL FAILURE [None]
  - RENAL IMPAIRMENT [None]
